FAERS Safety Report 6381812-4 (Version None)
Quarter: 2009Q3

REPORT INFORMATION
  Report Type: 
  Country: None (occurrence: None)
  Receive Date: 20090925
  Receipt Date: 20090917
  Transmission Date: 20100115
  Serious: Yes (Other)
  Sender: FDA-Public Use
  Company Number: 384239

PATIENT
  Age: 69 Year
  Sex: Female

DRUGS (5)
  1. HEPARIN SODIUM [Suspect]
     Indication: ANGIOGRAM
     Dosage: 1 MG/KG; 300 IU/KG
  2. HEPARIN SODIUM [Suspect]
     Indication: CARDIOPULMONARY BYPASS
     Dosage: 1 MG/KG; 300 IU/KG
  3. ENOXAPARIN SODIUM [Suspect]
     Indication: THROMBOSIS PROPHYLAXIS
     Dosage: 1 MG/KG, SUBCUTANEOUS
     Route: 058
  4. WARFARIN SODIUM [Suspect]
     Indication: ANTICOAGULANT THERAPY
  5. PROTAMINE SULFATE [Concomitant]

REACTIONS (7)
  - COAGULATION TIME ABNORMAL [None]
  - HEPARIN-INDUCED THROMBOCYTOPENIA [None]
  - INFECTED SKIN ULCER [None]
  - MICROANGIOPATHY [None]
  - PYODERMA GANGRENOSUM [None]
  - SKIN DISCOLOURATION [None]
  - THROMBOSIS [None]
